FAERS Safety Report 14716737 (Version 1)
Quarter: 2018Q2

REPORT INFORMATION
  Report Type: Spontaneous
  Country: FR (occurrence: FR)
  Receive Date: 20180404
  Receipt Date: 20180404
  Transmission Date: 20180711
  Serious: Yes (Hospitalization)
  Sender: FDA-Public Use
  Company Number: FR-ELI_LILLY_AND_COMPANY-FR201803012049

PATIENT
  Age: 26 Year
  Sex: Female
  Weight: 61 kg

DRUGS (1)
  1. ZYPADHERA [Suspect]
     Active Substance: OLANZAPINE PAMOATE
     Indication: SCHIZOPHRENIA
     Dosage: UNK, UNKNOWN
     Route: 030
     Dates: start: 20150120

REACTIONS (6)
  - Speech disorder [Recovered/Resolved]
  - Vertigo [Recovered/Resolved]
  - Muscle spasms [Recovered/Resolved]
  - Injection site pain [Recovered/Resolved]
  - Somnolence [Recovered/Resolved]
  - Restlessness [Recovered/Resolved]

NARRATIVE: CASE EVENT DATE: 20180306
